FAERS Safety Report 8533447-2 (Version None)
Quarter: 2012Q2

REPORT INFORMATION
  Report Type: 
  Country: None (occurrence: None)
  Receive Date: 20120412
  Receipt Date: 20120312
  Transmission Date: 20120825
  Serious: Yes (Other)
  Sender: FDA-Public Use
  Company Number: 2012S1000017

PATIENT
  Age: 42 Year
  Sex: Male

DRUGS (6)
  1. KRYSTEXXA [Suspect]
     Indication: GOUT
     Dosage: 8 MG;X1;IV X1;IV
     Route: 042
     Dates: start: 20120223, end: 20120223
  2. KRYSTEXXA [Suspect]
     Indication: GOUT
     Dosage: 8 MG;X1;IV X1;IV
     Route: 042
     Dates: start: 20120126, end: 20120126
  3. KRYSTEXXA [Suspect]
     Indication: GOUT
     Dosage: 8 MG;X1;IV X1;IV
     Route: 042
     Dates: start: 20120208, end: 20120208
  4. SOLU-MEDROL [Concomitant]
  5. BENADRYL /00945501/ [Concomitant]
  6. COLCHICINE [Concomitant]

REACTIONS (1)
  - INFUSION RELATED REACTION [None]
